FAERS Safety Report 4900821-2 (Version None)
Quarter: 2006Q1

REPORT INFORMATION
  Report Type: 
  Country: None (occurrence: None)
  Receive Date: 20060201
  Receipt Date: 20060116
  Transmission Date: 20060701
  Serious: Yes (Hospitalization)
  Sender: FDA-Public Use
  Company Number: CH200601001340

PATIENT
  Age: 62 Year
  Sex: Male

DRUGS (6)
  1. GEMZAR [Suspect]
     Indication: PANCREATIC CARCINOMA
     Dosage: 1600 MG, OTHER, INTRAVENOUS
     Route: 042
     Dates: start: 20050803, end: 20051213
  2. PANTOPRAZOLE SODIUM [Concomitant]
  3. PANCREATIN (PANCREATIN) TABLET [Concomitant]
  4. CHLORTALIDONE (CHLORTALIDONE) [Concomitant]
  5. FENTANYL [Concomitant]
  6. HALOPERIDOL [Concomitant]

REACTIONS (2)
  - MYOSITIS [None]
  - OEDEMA PERIPHERAL [None]
